FAERS Safety Report 12780589 (Version 1)
Quarter: 2016Q3

REPORT INFORMATION
  Report Type: Spontaneous
  Country: IT (occurrence: IT)
  Receive Date: 20160926
  Receipt Date: 20160926
  Transmission Date: 20161109
  Serious: Yes (Hospitalization)
  Sender: FDA-Public Use
  Company Number: IT-PFIZER INC-2016443843

PATIENT
  Age: 65 Year
  Sex: Male

DRUGS (6)
  1. LYRICA [Concomitant]
     Active Substance: PREGABALIN
  2. LANSOX [Concomitant]
     Active Substance: LANSOPRAZOLE
  3. TARGIN [Concomitant]
     Active Substance: NALOXONE HYDROCHLORIDE\OXYCODONE HYDROCHLORIDE
  4. DUROGESIC [Concomitant]
     Active Substance: FENTANYL
  5. TAVOR (LORAZEPAM) [Suspect]
     Active Substance: LORAZEPAM
     Indication: DEPRESSION
     Dosage: 1 DF, AS NEEDED
     Route: 048
     Dates: start: 20160617, end: 20160617
  6. ABSTRAL [Suspect]
     Active Substance: FENTANYL CITRATE
     Indication: PAIN
     Dosage: 100 UG, AS NEEDED
     Route: 060
     Dates: start: 20160617, end: 20160617

REACTIONS (2)
  - Psychomotor skills impaired [Unknown]
  - Confusional state [Unknown]

NARRATIVE: CASE EVENT DATE: 20160617
